FAERS Safety Report 25715554 (Version 1)
Quarter: 2025Q3

REPORT INFORMATION
  Report Type: Spontaneous
  Country: US (occurrence: US)
  Receive Date: 20250822
  Receipt Date: 20250822
  Transmission Date: 20251021
  Serious: No
  Sender: Kenvue
  Company Number: US-KENVUE-20250711358

PATIENT
  Age: 75 Year
  Sex: Female

DRUGS (1)
  1. WOMENS ROGAINE UNSCENTED [Suspect]
     Active Substance: MINOXIDIL
     Indication: Alopecia
     Dosage: FOR OVER A YEAR, HALF A CAPFUL , ONCE A DAY,
     Route: 065
     Dates: start: 2024, end: 2025

REACTIONS (1)
  - Dandruff [Recovering/Resolving]

NARRATIVE: CASE EVENT DATE: 20250601
